FAERS Safety Report 22529843 (Version 3)
Quarter: 2023Q2

REPORT INFORMATION
  Report Type: Spontaneous
  Country: US (occurrence: US)
  Receive Date: 20230607
  Receipt Date: 20230616
  Transmission Date: 20230722
  Serious: Yes (Other)
  Sender: FDA-Public Use
  Company Number: US-Accord-361263

PATIENT
  Age: 68 Year
  Sex: Female

DRUGS (1)
  1. CLOPIDOGREL [Suspect]
     Active Substance: CLOPIDOGREL BISULFATE
     Indication: Cerebrovascular accident
     Dates: start: 20230406, end: 20230406

REACTIONS (13)
  - Oropharyngeal blistering [Unknown]
  - Lip blister [Unknown]
  - Heart rate increased [Unknown]
  - Chest pain [Unknown]
  - Recalled product administered [Unknown]
  - Oral mucosal blistering [Unknown]
  - Throat irritation [Unknown]
  - Feeling abnormal [Unknown]
  - Headache [Unknown]
  - Blood pressure fluctuation [Unknown]
  - Blood glucose increased [Recovering/Resolving]
  - Cerebrovascular accident [Unknown]
  - Condition aggravated [Unknown]
